FAERS Safety Report 9684706 (Version 1)
Quarter: 2013Q4

REPORT INFORMATION
  Report Type: Spontaneous
  Country: US (occurrence: None)
  Receive Date: 20131108
  Receipt Date: 20131108
  Transmission Date: 20140711
  Serious: Yes (Life-Threatening, Hospitalization, Congenital Anomaly)
  Sender: FDA-Public Use
  Company Number: TIR-02991

PATIENT
  Sex: Female

DRUGS (1)
  1. LEVOTHYROXINE [Suspect]
     Route: 015

REACTIONS (10)
  - Tachycardia foetal [None]
  - Meconium stain [None]
  - Stridor [None]
  - Apgar score low [None]
  - Cardiac failure congestive [None]
  - Scar [None]
  - Basedow^s disease [None]
  - Neonatal respiratory distress syndrome [None]
  - Maternal drugs affecting foetus [None]
  - Premature baby [None]
